FAERS Safety Report 25188691 (Version 1)
Quarter: 2025Q2

REPORT INFORMATION
  Report Type: Spontaneous
  Country: US (occurrence: US)
  Receive Date: 20250411
  Receipt Date: 20250411
  Transmission Date: 20250717
  Serious: No
  Sender: MERCK SHARP AND DOHME
  Company Number: US-009507513-2274447

PATIENT
  Sex: Female

DRUGS (13)
  1. PEMBROLIZUMAB [Suspect]
     Active Substance: PEMBROLIZUMAB
     Indication: Endometrial neoplasm
     Route: 065
  2. LENVIMA [Suspect]
     Active Substance: LENVATINIB
     Indication: Endometrial neoplasm
     Dosage: STRENGTH:10 MG?PRESCRIBED: 20 MG DAILY
     Route: 048
     Dates: start: 20250305
  3. VALSARTAN [Concomitant]
     Active Substance: VALSARTAN
  4. MOUNJARO [Concomitant]
     Active Substance: TIRZEPATIDE
  5. COLACE [Concomitant]
     Active Substance: DOCUSATE SODIUM
  6. OXYCODONE [Concomitant]
     Active Substance: OXYCODONE
  7. MELATONIN [Concomitant]
     Active Substance: MELATONIN
  8. LAMICTAL [Concomitant]
     Active Substance: LAMOTRIGINE
  9. METFORMIN [Concomitant]
     Active Substance: METFORMIN HYDROCHLORIDE
  10. HYDROCHLOROTHIAZIDE [Concomitant]
     Active Substance: HYDROCHLOROTHIAZIDE
  11. ATORVASTATIN [Concomitant]
     Active Substance: ATORVASTATIN
  12. AMLODIPINE [Concomitant]
     Active Substance: AMLODIPINE BESYLATE
  13. LIDOCAINE [Concomitant]
     Active Substance: LIDOCAINE

REACTIONS (3)
  - Blood pressure increased [Recovering/Resolving]
  - Fatigue [Recovering/Resolving]
  - Product use issue [Unknown]

NARRATIVE: CASE EVENT DATE: 20250305
